FAERS Safety Report 10020886 (Version 1)
Quarter: 2014Q1

REPORT INFORMATION
  Report Type: Spontaneous
  Country: US (occurrence: None)
  Receive Date: 20140318
  Receipt Date: 20140318
  Transmission Date: 20141002
  Serious: Yes (Death)
  Sender: FDA-Public Use
  Company Number: None

PATIENT
  Age: 76 Year
  Sex: Male

DRUGS (1)
  1. NEXAVAR 200 MG BAYER [Suspect]
     Indication: HEPATIC CANCER
     Route: 048
     Dates: start: 20131221, end: 20140228

REACTIONS (1)
  - Death [None]
